FAERS Safety Report 24173915 (Version 2)
Quarter: 2024Q3

REPORT INFORMATION
  Report Type: Spontaneous
  Country: MX (occurrence: MX)
  Receive Date: 20240805
  Receipt Date: 20240807
  Transmission Date: 20241017
  Serious: Yes (Life-Threatening, Hospitalization)
  Sender: RARE DISEASE THERAPEUTICS
  Company Number: MX-Rare Disease Therapeutics, Inc.-2160011

PATIENT
  Age: 26 Year
  Sex: Female

DRUGS (2)
  1. ANASCORP [Suspect]
     Active Substance: SCORPION (CENTRUROIDES) IMMUNE FAB2 ANTIVENIN (EQUINE)
     Route: 042
     Dates: start: 20240720, end: 20240720
  2. ALBUTEROL [Concomitant]
     Active Substance: ALBUTEROL

REACTIONS (3)
  - Cardio-respiratory arrest [Recovered/Resolved with Sequelae]
  - Post cardiac arrest syndrome [Recovered/Resolved]
  - Anaphylactic shock [Recovered/Resolved]

NARRATIVE: CASE EVENT DATE: 20240720
